FAERS Safety Report 4896702-3 (Version None)
Quarter: 2006Q1

REPORT INFORMATION
  Report Type: 
  Country: None (occurrence: None)
  Receive Date: 20060131
  Receipt Date: 20060123
  Transmission Date: 20060701
  Serious: Yes (Hospitalization)
  Sender: FDA-Public Use
  Company Number: US-MERCK-0601USA02652

PATIENT
  Age: 56 Year
  Sex: Female

DRUGS (6)
  1. ZOCOR [Suspect]
     Indication: BLOOD CHOLESTEROL INCREASED
     Route: 048
     Dates: start: 20040101, end: 20050501
  2. HYZAAR [Concomitant]
     Route: 065
  3. ATENOLOL [Concomitant]
     Route: 065
  4. CELEBREX [Concomitant]
     Route: 065
  5. ASPIRIN [Concomitant]
     Route: 065
  6. KLOR-CON [Concomitant]
     Route: 065

REACTIONS (3)
  - DIARRHOEA [None]
  - MENSTRUATION IRREGULAR [None]
  - VOMITING [None]
